FAERS Safety Report 7937444-7 (Version None)
Quarter: 2011Q4

REPORT INFORMATION
  Report Type: 
  Country: None (occurrence: None)
  Receive Date: 20111123
  Receipt Date: 20111116
  Transmission Date: 20120403
  Serious: Yes (Hospitalization)
  Sender: FDA-Public Use
  Company Number: TR-MEDIMMUNE-MEDI-0013955

PATIENT
  Age: 2 Month
  Sex: Female
  Weight: 2 kg

DRUGS (1)
  1. SYNAGIS [Suspect]
     Route: 030
     Dates: start: 20111116, end: 20111116

REACTIONS (2)
  - OVERDOSE [None]
  - INCORRECT DOSE ADMINISTERED [None]
